FAERS Safety Report 9764668 (Version 1)
Quarter: 2013Q4

REPORT INFORMATION
  Report Type: Report from Study
  Country: CA (occurrence: CA)
  Receive Date: 20131217
  Receipt Date: 20131217
  Transmission Date: 20140711
  Serious: No
  Sender: FDA-Public Use
  Company Number: CA-JNJFOC-20131209164

PATIENT
  Age: 57 Year
  Sex: Female

DRUGS (1)
  1. GOLIMUMAB [Suspect]
     Indication: RHEUMATOID ARTHRITIS
     Route: 058
     Dates: start: 20120104

REACTIONS (9)
  - Tumour pain [Unknown]
  - Endodontic procedure [Unknown]
  - Palpitations [Unknown]
  - Dyspnoea exertional [Unknown]
  - Nasal congestion [Unknown]
  - Cough [Unknown]
  - Dry eye [Unknown]
  - Conjunctivitis [Unknown]
  - Vertigo positional [Unknown]
